FAERS Safety Report 12602010 (Version 1)
Quarter: 2016Q3

REPORT INFORMATION
  Report Type: Report from Study
  Country: AU (occurrence: AU)
  Receive Date: 20160728
  Receipt Date: 20160728
  Transmission Date: 20161109
  Serious: Yes (Hospitalization)
  Sender: FDA-Public Use
  Company Number: PHHO2012AU003221

PATIENT
  Age: 66 Year
  Sex: Male
  Weight: 104 kg

DRUGS (1)
  1. EVEROLIMUS [Suspect]
     Active Substance: EVEROLIMUS
     Indication: DIFFUSE LARGE B-CELL LYMPHOMA
     Dosage: 10 MG, QD
     Route: 048
     Dates: start: 20110831, end: 20120215

REACTIONS (1)
  - Febrile neutropenia [Recovered/Resolved]

NARRATIVE: CASE EVENT DATE: 20120215
